FAERS Safety Report 5051088-9 (Version None)
Quarter: 2006Q3

REPORT INFORMATION
  Report Type: 
  Country: None (occurrence: None)
  Receive Date: 20060714
  Receipt Date: 20060705
  Transmission Date: 20061208
  Serious: Yes (Other)
  Sender: FDA-Public Use
  Company Number: US-JNJFOC-20060700814

PATIENT
  Sex: Female
  Weight: 67.13 kg

DRUGS (17)
  1. REMICADE [Suspect]
     Indication: RHEUMATOID ARTHRITIS
     Route: 042
  2. ZETIA [Concomitant]
     Indication: BLOOD CHOLESTEROL INCREASED
  3. TRICOR [Concomitant]
     Indication: BLOOD TRIGLYCERIDES INCREASED
  4. NEXIUM [Concomitant]
     Indication: GASTROOESOPHAGEAL REFLUX DISEASE
  5. OGEN [Concomitant]
     Indication: HORMONE REPLACEMENT THERAPY
  6. PREDNISONE [Concomitant]
     Indication: RHEUMATOID ARTHRITIS
  7. EFFEXOR XR [Concomitant]
     Indication: ANTIDEPRESSANT THERAPY
  8. RESTORIL [Concomitant]
     Indication: SLEEP DISORDER
  9. DIAZIDE [Concomitant]
     Indication: HYPERTENSION
     Dosage: 3.5/25 MG
  10. CARDIZEM CD [Concomitant]
     Indication: HYPERTENSION
  11. CALCIUM GLUCONATE [Concomitant]
  12. PROVIGIL [Concomitant]
  13. FOLIC ACID [Concomitant]
  14. IMMUNE GLOBULIN INTRAVENOUS (HUMAN) [Concomitant]
     Indication: HYPOGAMMAGLOBULINAEMIA
     Route: 042
  15. GLUCOPHAGE [Concomitant]
  16. ZELNORM [Concomitant]
     Indication: INFLAMMATORY BOWEL DISEASE
  17. FEMRING [Concomitant]
     Indication: HORMONE THERAPY

REACTIONS (1)
  - BREAST CANCER [None]
